FAERS Safety Report 6909699-9 (Version None)
Quarter: 2010Q3

REPORT INFORMATION
  Report Type: 
  Country: None (occurrence: None)
  Receive Date: 20100805
  Receipt Date: 20100727
  Transmission Date: 20110219
  Serious: Yes (Life-Threatening)
  Sender: FDA-Public Use
  Company Number: NL-AMGEN-US422702

PATIENT
  Age: 90 Year
  Sex: Female

DRUGS (12)
  1. ENBREL [Suspect]
     Indication: PSORIASIS
     Route: 058
     Dates: start: 20090501
  2. ASCAL [Suspect]
     Indication: PRODUCT USED FOR UNKNOWN INDICATION
     Dosage: 80 MG
  3. EFFEXOR XR [Concomitant]
  4. ENALAPRIL [Concomitant]
  5. FUROSEMIDE [Concomitant]
  6. COZAAR [Concomitant]
  7. ISOSORBIDE [Concomitant]
  8. NEXIUM [Concomitant]
  9. SIMVASTATIN [Concomitant]
  10. FERROFUMARAT [Concomitant]
  11. BISOPROLOL [Concomitant]
  12. GLIMEPIRIDE [Concomitant]

REACTIONS (4)
  - ANAEMIA [None]
  - BLOOD CREATININE INCREASED [None]
  - EPISTAXIS [None]
  - RENAL FUNCTION TEST ABNORMAL [None]
